FAERS Safety Report 23030412 (Version 4)
Quarter: 2024Q1

REPORT INFORMATION
  Report Type: Report from Study
  Country: US (occurrence: US)
  Receive Date: 20231005
  Receipt Date: 20240105
  Transmission Date: 20240409
  Serious: No
  Sender: FDA-Public Use
  Company Number: US-002147023-NVSC2023US209914

PATIENT
  Sex: Male

DRUGS (3)
  1. ENTRESTO [Suspect]
     Active Substance: SACUBITRIL\VALSARTAN
     Indication: Product used for unknown indication
     Dosage: 1 DOSAGE FORM, BID (97/103 MG)
     Route: 065
     Dates: start: 202302
  2. FLECAINIDE [Suspect]
     Active Substance: FLECAINIDE
     Indication: Product used for unknown indication
     Dosage: UNK UNK, BID
     Route: 065
     Dates: start: 202306
  3. FLECAINIDE [Suspect]
     Active Substance: FLECAINIDE
     Dosage: UNK, QD
     Route: 065

REACTIONS (10)
  - Haematocrit decreased [Unknown]
  - Feeling abnormal [Unknown]
  - Somnolence [Recovering/Resolving]
  - Vertigo [Recovered/Resolved]
  - Dizziness [Recovered/Resolved]
  - Heart rate irregular [Unknown]
  - Hypoaesthesia [Unknown]
  - Paraesthesia [Unknown]
  - Product dose omission issue [Unknown]
  - Inappropriate schedule of product administration [Unknown]
